FAERS Safety Report 17763259 (Version 1)
Quarter: 2020Q2

REPORT INFORMATION
  Report Type: Report from Study
  Country: JP (occurrence: JP)
  Receive Date: 20200509
  Receipt Date: 20200509
  Transmission Date: 20200714
  Serious: Yes (Other)
  Sender: FDA-Public Use
  Company Number: JP-TAKEDA-2019TUS071626

PATIENT
  Age: 47 Year
  Sex: Female
  Weight: 66.5 kg

DRUGS (3)
  1. DEXAMETHASONE. [Concomitant]
     Active Substance: DEXAMETHASONE
     Indication: PLASMA CELL MYELOMA
     Dosage: 20 MILLIGRAM, QD
     Route: 065
     Dates: start: 20180118, end: 20180221
  2. DARATUMUMAB [Suspect]
     Active Substance: DARATUMUMAB
     Indication: PLASMA CELL MYELOMA
     Dosage: 16 MILLIGRAM/KILOGRAM
     Route: 042
     Dates: start: 20180118, end: 20180420
  3. BORTEZOMIB. [Suspect]
     Active Substance: BORTEZOMIB
     Indication: PLASMA CELL MYELOMA
     Dosage: 1.3 MILLIGRAM/SQ. METER
     Route: 065
     Dates: start: 20180125, end: 20180420

REACTIONS (5)
  - Platelet count decreased [Unknown]
  - Coombs indirect test positive [Recovered/Resolved]
  - White blood cell count decreased [Recovering/Resolving]
  - Crossmatch incompatible [Unknown]
  - Coombs direct test positive [Recovered/Resolved]

NARRATIVE: CASE EVENT DATE: 20180118
